FAERS Safety Report 5429131-4 (Version None)
Quarter: 2007Q3

REPORT INFORMATION
  Report Type: 
  Country: None (occurrence: None)
  Receive Date: 20070829
  Receipt Date: 20070820
  Transmission Date: 20080115
  Serious: Yes (Other)
  Sender: FDA-Public Use
  Company Number: US-AMGEN-US239521

PATIENT
  Sex: Female

DRUGS (2)
  1. ARANESP [Suspect]
     Indication: RENAL FAILURE CHRONIC
     Route: 065
     Dates: start: 20040101
  2. ESTROGEN NOS [Concomitant]
     Route: 065
     Dates: end: 20070801

REACTIONS (1)
  - THROMBOPHLEBITIS SUPERFICIAL [None]
